FAERS Safety Report 21314261 (Version 2)
Quarter: 2024Q3

REPORT INFORMATION
  Report Type: Spontaneous
  Country: US (occurrence: None)
  Receive Date: 20220909
  Receipt Date: 20240906
  Transmission Date: 20241017
  Serious: No
  Sender: DOMPE FARMACEUTICI
  Company Number: US-ARIS GLOBAL-202109-1725

PATIENT
  Sex: Male

DRUGS (22)
  1. OXERVATE [Suspect]
     Active Substance: CENEGERMIN-BKBJ
     Indication: Neurotrophic keratopathy
     Route: 047
     Dates: start: 20210915
  2. OXERVATE [Suspect]
     Active Substance: CENEGERMIN-BKBJ
     Indication: Ulcerative keratitis
     Route: 047
     Dates: start: 20230831
  3. ASPIRIN [Concomitant]
     Active Substance: ASPIRIN
  4. TRULICITY [Concomitant]
     Active Substance: DULAGLUTIDE
     Dosage: 1.5 MG/0.5 PEN INJECTOR
  5. SYNTHROID [Concomitant]
     Active Substance: LEVOTHYROXINE SODIUM
  6. EZETIMIBE [Concomitant]
     Active Substance: EZETIMIBE
  7. CHLORTHALIDONE [Concomitant]
     Active Substance: CHLORTHALIDONE
  8. METOPROLOL SUCCINATE [Concomitant]
     Active Substance: METOPROLOL SUCCINATE
  9. FAMOTIDINE [Concomitant]
     Active Substance: FAMOTIDINE
  10. LISINOPRIL [Concomitant]
     Active Substance: LISINOPRIL
  11. ALLOPURINOL [Concomitant]
     Active Substance: ALLOPURINOL
  12. FUROSEMIDE [Concomitant]
     Active Substance: FUROSEMIDE
  13. SPIRONOLACTONE [Concomitant]
     Active Substance: SPIRONOLACTONE
  14. ELIQUIS [Concomitant]
     Active Substance: APIXABAN
  15. GLIMEPIRIDE [Concomitant]
     Active Substance: GLIMEPIRIDE
  16. METFORMIN HYDROCHLORIDE [Concomitant]
     Active Substance: METFORMIN HYDROCHLORIDE
     Dosage: FOR 24 HOURS
  17. PREDNISOLONE [Concomitant]
     Active Substance: PREDNISOLONE
  18. BESIVANCE [Concomitant]
     Active Substance: BESIFLOXACIN
  19. ARTIFICIAL TEARS [Concomitant]
  20. ATROPINE SULFATE [Concomitant]
     Active Substance: ATROPINE SULFATE
  21. PRED FORTE [Concomitant]
     Active Substance: PREDNISOLONE ACETATE
  22. MOXIFLOXACIN [Concomitant]
     Active Substance: MOXIFLOXACIN

REACTIONS (3)
  - Eye pain [Unknown]
  - Disease progression [Unknown]
  - Product dose omission issue [Unknown]
